FAERS Safety Report 7040493-7 (Version None)
Quarter: 2010Q4

REPORT INFORMATION
  Report Type: 
  Country: None (occurrence: None)
  Receive Date: 20101012
  Receipt Date: 20101005
  Transmission Date: 20110411
  Serious: Yes (Hospitalization)
  Sender: FDA-Public Use
  Company Number: US-AMGEN-QUU443488

PATIENT
  Sex: Female

DRUGS (5)
  1. NPLATE [Suspect]
     Indication: THROMBOCYTOPENIA
     Dates: start: 20091207, end: 20100730
  2. IMMU-G [Concomitant]
     Dates: start: 20090209, end: 20100118
  3. PREDNISONE [Concomitant]
     Dates: start: 20091207, end: 20100106
  4. CORTICOSTEROIDS [Concomitant]
     Dates: start: 20091207, end: 20100106
  5. GAMMAGARD [Concomitant]
     Dates: start: 20091209, end: 20100118

REACTIONS (1)
  - SURGERY [None]
